FAERS Safety Report 6805029-1 (Version None)
Quarter: 2010Q2

REPORT INFORMATION
  Report Type: 
  Country: None (occurrence: None)
  Receive Date: 20100628
  Receipt Date: 20070724
  Transmission Date: 20101027
  Serious: No
  Sender: FDA-Public Use
  Company Number: US-PFIZER INC-2007061276

PATIENT
  Sex: Male
  Weight: 106.81 kg

DRUGS (7)
  1. GENOTROPIN [Suspect]
     Indication: ADENOMA BENIGN
     Dates: start: 20020101
  2. INSULIN [Concomitant]
  3. TESTOSTERONE [Concomitant]
  4. VYTORIN [Concomitant]
  5. PRINIVIL [Concomitant]
  6. MULTI-VITAMINS [Concomitant]
  7. NOVOLOG [Concomitant]

REACTIONS (5)
  - BLOOD PRESSURE INCREASED [None]
  - DRUG LEVEL INCREASED [None]
  - MALAISE [None]
  - SWELLING [None]
  - WEIGHT INCREASED [None]
